FAERS Safety Report 15737085 (Version 2)
Quarter: 2018Q4

REPORT INFORMATION
  Report Type: Report from Study
  Country: PH (occurrence: PH)
  Receive Date: 20181218
  Receipt Date: 20181221
  Transmission Date: 20190205
  Serious: Yes (Death)
  Sender: FDA-Public Use
  Company Number: PHHY2018PH188170

PATIENT
  Age: 77 Year
  Sex: Male

DRUGS (1)
  1. ENTRESTO [Suspect]
     Active Substance: SACUBITRIL\VALSARTAN
     Indication: CARDIAC FAILURE
     Dosage: 200 MG, BID
     Route: 048
     Dates: start: 20180226

REACTIONS (5)
  - Electrolyte imbalance [Fatal]
  - Fatigue [Fatal]
  - Cardiac arrest [Fatal]
  - Asthenia [Fatal]
  - Arrhythmia [Fatal]

NARRATIVE: CASE EVENT DATE: 20181119
